FAERS Safety Report 12354993 (Version 9)
Quarter: 2016Q4

REPORT INFORMATION
  Report Type: Report from Study
  Country: NL (occurrence: NL)
  Receive Date: 20160511
  Receipt Date: 20161219
  Transmission Date: 20170207
  Serious: Yes (Hospitalization)
  Sender: FDA-Public Use
  Company Number: NL-CELGENEUS-NLD-2016047746

PATIENT
  Age: 69 Year
  Sex: Male

DRUGS (47)
  1. CARBOPLATIN. [Suspect]
     Active Substance: CARBOPLATIN
     Indication: NON-SMALL CELL LUNG CANCER
     Dosage: 570 MG
     Route: 041
     Dates: start: 20160317
  2. BLOOD, WHOLE [Concomitant]
     Active Substance: WHOLE BLOOD
     Indication: ANAEMIA
     Route: 041
     Dates: start: 20160407, end: 20160407
  3. ALENDRONIC ACID [Concomitant]
     Active Substance: ALENDRONIC ACID
     Indication: OSTEOPOROSIS PROPHYLAXIS
     Route: 065
  4. ONDANSETRON [Concomitant]
     Active Substance: ONDANSETRON
     Route: 065
     Dates: start: 20160525, end: 20160525
  5. SODIUM CHLORIDE. [Concomitant]
     Active Substance: SODIUM CHLORIDE
     Indication: PROPHYLAXIS AGAINST DEHYDRATION
     Route: 041
  6. FUROSEMIDE. [Concomitant]
     Active Substance: FUROSEMIDE
     Indication: TRANSFUSION
     Route: 065
     Dates: start: 20160407, end: 20160407
  7. MEBEVERINE [Concomitant]
     Active Substance: MEBEVERINE
     Route: 065
     Dates: start: 20160519, end: 20160519
  8. PARACETAMOL [Concomitant]
     Active Substance: ACETAMINOPHEN
     Indication: MUSCULOSKELETAL CHEST PAIN
     Route: 065
     Dates: start: 20160729
  9. GEMFIBROZIL. [Concomitant]
     Active Substance: GEMFIBROZIL
     Indication: BLOOD CHOLESTEROL
     Route: 065
     Dates: start: 20151228
  10. EFFIENT [Concomitant]
     Active Substance: PRASUGREL HYDROCHLORIDE
     Indication: PRODUCT USED FOR UNKNOWN INDICATION
     Route: 065
     Dates: start: 20151228
  11. METOCLOPRAMIDE. [Concomitant]
     Active Substance: METOCLOPRAMIDE
     Indication: PROPHYLAXIS OF NAUSEA AND VOMITING
     Route: 065
     Dates: start: 20160323
  12. NIFEDIPINE. [Concomitant]
     Active Substance: NIFEDIPINE
     Indication: HYPERTENSION
     Route: 065
     Dates: start: 20151228
  13. ONDANSETRON [Concomitant]
     Active Substance: ONDANSETRON
     Indication: PROPHYLAXIS OF NAUSEA AND VOMITING
     Route: 065
     Dates: start: 20160428, end: 20160428
  14. DEXAMETHASONE. [Concomitant]
     Active Substance: DEXAMETHASONE
     Indication: PROPHYLACTIC CHEMOTHERAPY
     Route: 065
     Dates: start: 20160428, end: 20160428
  15. AZITHROMYCIN ANHYDROUS. [Concomitant]
     Active Substance: AZITHROMYCIN ANHYDROUS
     Indication: URINARY TRACT INFECTION
     Route: 065
  16. ABRAXANE [Suspect]
     Active Substance: PACLITAXEL
     Indication: NON-SMALL CELL LUNG CANCER
     Dosage: 100 MG/M2
     Route: 041
     Dates: start: 20160317, end: 20160324
  17. ABRAXANE [Suspect]
     Active Substance: PACLITAXEL
     Dosage: DOSE REDUCED
     Route: 041
     Dates: start: 20160408, end: 20160428
  18. MACROGOL [Concomitant]
     Active Substance: POLYETHYLENE GLYCOLS
     Indication: CONSTIPATION PROPHYLAXIS
     Route: 065
     Dates: start: 20151203
  19. CEFTRIAXON [Concomitant]
     Active Substance: CEFTRIAXONE
     Indication: PYREXIA
     Route: 065
     Dates: start: 20160403, end: 20160409
  20. ONDANSETRON [Concomitant]
     Active Substance: ONDANSETRON
     Route: 065
     Dates: start: 20160519, end: 20160519
  21. ONDANSETRON [Concomitant]
     Active Substance: ONDANSETRON
     Route: 065
     Dates: start: 20160317, end: 20160525
  22. LOPERAMIDE [Concomitant]
     Active Substance: LOPERAMIDE
     Indication: DIARRHOEA
     Route: 065
     Dates: start: 20160428
  23. CLOBETASOL [Concomitant]
     Active Substance: CLOBETASOL
     Indication: SKIN DISORDER
     Route: 065
     Dates: start: 20160426
  24. AMLODIPINE [Concomitant]
     Active Substance: AMLODIPINE BESYLATE
     Indication: PRODUCT USED FOR UNKNOWN INDICATION
     Route: 065
     Dates: start: 20160315, end: 20160325
  25. OXYCONTIN [Concomitant]
     Active Substance: OXYCODONE HYDROCHLORIDE
     Indication: MUSCULOSKELETAL CHEST PAIN
     Route: 065
     Dates: start: 20160729, end: 20160825
  26. CARBOPLATIN. [Suspect]
     Active Substance: CARBOPLATIN
     Dosage: DOSE REDUCED
     Route: 041
     Dates: start: 20160408, end: 20160428
  27. SALBUTAMOL [Concomitant]
     Active Substance: ALBUTEROL
     Indication: DYSPNOEA
     Route: 065
     Dates: start: 20150310
  28. NITROLINGUAL [Concomitant]
     Active Substance: NITROGLYCERIN
     Indication: CHEST PAIN
     Route: 065
     Dates: start: 20151228
  29. NIFEDIPINE. [Concomitant]
     Active Substance: NIFEDIPINE
     Indication: GASTRIC DISORDER
  30. SPIRIVA [Concomitant]
     Active Substance: TIOTROPIUM BROMIDE MONOHYDRATE
     Indication: DYSPNOEA
     Route: 065
     Dates: start: 20150310
  31. SIMVASTATINE [Concomitant]
     Active Substance: SIMVASTATIN
     Indication: BLOOD CHOLESTEROL
     Route: 065
     Dates: start: 20151228
  32. COTRIMOXAZOL [Concomitant]
     Active Substance: SULFAMETHOXAZOLE\TRIMETHOPRIM
     Indication: URINARY TRACT INFECTION
     Route: 065
     Dates: start: 20160426, end: 20160429
  33. ONDANSETRON [Concomitant]
     Active Substance: ONDANSETRON
     Route: 065
     Dates: start: 20160317, end: 20160317
  34. ONDANSETRON [Concomitant]
     Active Substance: ONDANSETRON
     Route: 065
     Dates: start: 20160408, end: 20160408
  35. ATEZOLIZUMAB [Suspect]
     Active Substance: ATEZOLIZUMAB
     Indication: NON-SMALL CELL LUNG CANCER
     Dosage: 1200 MG
     Route: 041
     Dates: start: 20160317, end: 20160428
  36. ATEZOLIZUMAB [Suspect]
     Active Substance: ATEZOLIZUMAB
     Dosage: 1200 MG
     Route: 041
     Dates: end: 20160525
  37. PANTOPRAZOL [Concomitant]
     Active Substance: PANTOPRAZOLE SODIUM
     Indication: GASTRIC ULCER
     Route: 065
     Dates: start: 20150209
  38. COTRIMOXAZOL [Concomitant]
     Active Substance: SULFAMETHOXAZOLE\TRIMETHOPRIM
     Route: 065
     Dates: start: 20160519, end: 20160519
  39. DOXYCYCLINE. [Concomitant]
     Active Substance: DOXYCYCLINE
     Indication: BRONCHITIS
     Route: 065
     Dates: start: 20160714, end: 20160721
  40. OXYNORM [Concomitant]
     Active Substance: OXYCODONE HYDROCHLORIDE
     Indication: MUSCULOSKELETAL CHEST PAIN
     Route: 065
     Dates: start: 20160729
  41. ABRAXANE [Suspect]
     Active Substance: PACLITAXEL
     Dosage: 155 MG
     Route: 041
  42. CARBOPLATIN. [Suspect]
     Active Substance: CARBOPLATIN
     Dosage: 460 MG
     Route: 041
  43. ACETYLSALICYLIC ACID [Concomitant]
     Active Substance: ASPIRIN
     Indication: PRODUCT USED FOR UNKNOWN INDICATION
     Route: 065
     Dates: start: 20151228
  44. METOPROLOL. [Concomitant]
     Active Substance: METOPROLOL
     Indication: ANGIOPATHY
     Route: 065
     Dates: start: 20151007
  45. ZOPICLON [Concomitant]
     Active Substance: ZOPICLONE
     Indication: INSOMNIA
     Route: 065
     Dates: start: 20150126
  46. MEBEVERINE [Concomitant]
     Active Substance: MEBEVERINE
     Indication: GASTRIC DISORDER
     Route: 065
     Dates: start: 20160425, end: 20160426
  47. DEXAMETHASONE. [Concomitant]
     Active Substance: DEXAMETHASONE
     Route: 065
     Dates: start: 20160519, end: 20160520

REACTIONS (7)
  - Malaise [Recovered/Resolved]
  - Febrile neutropenia [Recovered/Resolved]
  - Rectal haemorrhage [Recovered/Resolved]
  - Rectal haemorrhage [Recovered/Resolved]
  - Hypocalcaemia [Recovered/Resolved]
  - Hypomagnesaemia [Recovered/Resolved]
  - Hyponatraemia [Recovered/Resolved]

NARRATIVE: CASE EVENT DATE: 20160326
